FAERS Safety Report 8315156-8 (Version None)
Quarter: 2012Q2

REPORT INFORMATION
  Report Type: 
  Country: None (occurrence: None)
  Receive Date: 20120426
  Receipt Date: 20120420
  Transmission Date: 20120825
  Serious: Yes (Death, Hospitalization)
  Sender: FDA-Public Use
  Company Number: US-GLAXOSMITHKLINE-A0974619A

PATIENT
  Age: 79 Year
  Sex: Male

DRUGS (7)
  1. POTASSIUM CHLORIDE [Concomitant]
  2. ASPIRIN [Concomitant]
  3. CALTRATE + D [Concomitant]
  4. ADVAIR DISKUS 100/50 [Suspect]
     Indication: CHRONIC OBSTRUCTIVE PULMONARY DISEASE
     Dosage: 1PUFF TWICE PER DAY
     Route: 055
     Dates: start: 20110101
  5. WATER PILL [Concomitant]
  6. BLOOD PRESSURE MEDICATION [Concomitant]
  7. SPIRIVA [Concomitant]

REACTIONS (3)
  - RIB FRACTURE [None]
  - CHRONIC OBSTRUCTIVE PULMONARY DISEASE [None]
  - FALL [None]
